FAERS Safety Report 7418752-5 (Version None)
Quarter: 2011Q2

REPORT INFORMATION
  Report Type: 
  Country: None (occurrence: None)
  Receive Date: 20110415
  Receipt Date: 20110412
  Transmission Date: 20111010
  Serious: Yes (Death, Hospitalization, Other)
  Sender: FDA-Public Use
  Company Number: US-PFIZER INC-2008150181

PATIENT
  Age: 62 Year
  Sex: Female

DRUGS (5)
  1. NEURONTIN [Suspect]
     Indication: PAIN
     Dosage: UNK
     Route: 048
     Dates: start: 20031222, end: 20070219
  2. TRAMADOL [Concomitant]
     Dosage: UNK
     Dates: start: 20050223, end: 20070219
  3. MIRTAZAPINE [Concomitant]
     Dosage: UNK
     Dates: start: 20040122, end: 20070219
  4. AMITRIPTYLINE [Concomitant]
     Dosage: UNK
     Dates: start: 20041029, end: 20070219
  5. GABAPENTIN [Suspect]
     Dosage: UNK

REACTIONS (4)
  - SUICIDAL IDEATION [None]
  - ANXIETY [None]
  - COMPLETED SUICIDE [None]
  - DRUG INEFFECTIVE [None]
